FAERS Safety Report 18296115 (Version 2)
Quarter: 2020Q3

REPORT INFORMATION
  Report Type: Spontaneous
  Country: US (occurrence: US)
  Receive Date: 20200922
  Receipt Date: 20200929
  Transmission Date: 20201103
  Serious: Yes (Other)
  Sender: FDA-Public Use
  Company Number: US-009507513-2009USA008100

PATIENT
  Age: 25 Year
  Sex: Female

DRUGS (1)
  1. ETONOGESTREL IMPLANT [Suspect]
     Active Substance: ETONOGESTREL
     Dosage: 1 IMPLANT
     Route: 059
     Dates: start: 2015, end: 20200903

REACTIONS (4)
  - Incorrect product administration duration [Unknown]
  - Device dislocation [Recovered/Resolved]
  - Complication associated with device [Recovered/Resolved]
  - Device issue [Recovered/Resolved]

NARRATIVE: CASE EVENT DATE: 2018
